FAERS Safety Report 8487698-6 (Version None)
Quarter: 2012Q3

REPORT INFORMATION
  Report Type: 
  Country: None (occurrence: None)
  Receive Date: 20120705
  Receipt Date: 20120628
  Transmission Date: 20120928
  Serious: Yes (Hospitalization, Other)
  Sender: FDA-Public Use
  Company Number: KR-JNJFOC-20120412518

PATIENT
  Age: 31 Year
  Sex: Male

DRUGS (6)
  1. VALPROATE SODIUM [Concomitant]
     Route: 065
  2. THIAMINE [Concomitant]
     Route: 065
  3. INVEGA SUSTENNA [Suspect]
     Indication: SCHIZOPHRENIA
     Route: 030
     Dates: start: 20120404
  4. INVEGA SUSTENNA [Suspect]
     Route: 030
     Dates: start: 20120410
  5. ATIVAN [Concomitant]
     Route: 065
  6. FLUNITRAZEPAM [Concomitant]
     Route: 065

REACTIONS (3)
  - INJECTION SITE PUSTULE [None]
  - PSYCHOTIC DISORDER [None]
  - INJECTION SITE INFLAMMATION [None]
